FAERS Safety Report 6910209-0 (Version None)
Quarter: 2010Q3

REPORT INFORMATION
  Report Type: 
  Country: None (occurrence: None)
  Receive Date: 20100806
  Receipt Date: 20100727
  Transmission Date: 20110219
  Serious: Yes (Hospitalization)
  Sender: FDA-Public Use
  Company Number: DE-JNJFOC-20100407470

PATIENT
  Age: 79 Year
  Sex: Female

DRUGS (13)
  1. REMICADE [Suspect]
     Indication: RHEUMATOID ARTHRITIS
     Route: 042
  2. REMICADE [Suspect]
     Route: 042
  3. REMICADE [Suspect]
     Route: 042
  4. REMICADE [Suspect]
     Route: 042
  5. REMICADE [Suspect]
     Route: 042
  6. REMICADE [Suspect]
     Route: 042
  7. REMICADE [Suspect]
     Route: 042
  8. REMICADE [Suspect]
     Route: 042
  9. METHOTREXATE [Concomitant]
     Dosage: DOSE 5.0
  10. METHOTREXATE [Concomitant]
  11. LEFLUNOMIDE [Concomitant]
     Dosage: DOSE 20
  12. LEFLUNOMIDE [Concomitant]
  13. PREDNISOLONE [Concomitant]

REACTIONS (5)
  - ANGINA PECTORIS [None]
  - BREAST CANCER IN SITU [None]
  - CORONARY ARTERY DISEASE [None]
  - DYSPNOEA [None]
  - PULMONARY FIBROSIS [None]
